FAERS Safety Report 21437027 (Version 7)
Quarter: 2025Q1

REPORT INFORMATION
  Report Type: Spontaneous
  Country: US (occurrence: US)
  Receive Date: 20221010
  Receipt Date: 20250324
  Transmission Date: 20250408
  Serious: Yes (Disabling, Other)
  Sender: PFIZER
  Company Number: US-PFIZER INC-PV202200079193

PATIENT
  Age: 80 Year
  Sex: Female

DRUGS (4)
  1. XELJANZ XR [Suspect]
     Active Substance: TOFACITINIB CITRATE
     Indication: Rheumatoid arthritis
  2. XELJANZ XR [Suspect]
     Active Substance: TOFACITINIB CITRATE
     Dosage: 11 MG, DAILY
  3. FOSAMAX [Concomitant]
     Active Substance: ALENDRONATE SODIUM
  4. INFLUENZA VIRUS VACCINE [Concomitant]
     Active Substance: INFLUENZA VIRUS VACCINE
     Indication: Influenza immunisation
     Dates: start: 20231030, end: 20231030

REACTIONS (5)
  - Blindness [Not Recovered/Not Resolved]
  - Skin cancer [Unknown]
  - Asthenia [Unknown]
  - Skin papilloma [Unknown]
  - COVID-19 [Unknown]

NARRATIVE: CASE EVENT DATE: 20240601
